FAERS Safety Report 16627820 (Version 1)
Quarter: 2019Q3

REPORT INFORMATION
  Report Type: Spontaneous
  Country: US (occurrence: US)
  Receive Date: 20190724
  Receipt Date: 20190724
  Transmission Date: 20191004
  Serious: Yes (Other)
  Sender: FDA-Public Use
  Company Number: US-JNJFOC-20190637570

PATIENT
  Age: 83 Year
  Sex: Male
  Weight: 97.61 kg

DRUGS (6)
  1. XARELTO [Suspect]
     Active Substance: RIVAROXABAN
     Indication: ATRIAL FIBRILLATION
     Dosage: PRESCRIPTION NUMBER: 100001059160/ 937049
     Route: 048
     Dates: start: 2018, end: 2019
  2. FELODIPINE. [Concomitant]
     Active Substance: FELODIPINE
     Indication: BLOOD PRESSURE ABNORMAL
     Route: 048
  3. ZESTORETIC [Concomitant]
     Active Substance: HYDROCHLOROTHIAZIDE\LISINOPRIL
     Indication: BLOOD PRESSURE ABNORMAL
     Dosage: 20/25 MG
     Route: 048
  4. XARELTO [Suspect]
     Active Substance: RIVAROXABAN
     Indication: CEREBROVASCULAR ACCIDENT PROPHYLAXIS
     Route: 048
     Dates: start: 20190602, end: 20190610
  5. LISINOPRIL. [Concomitant]
     Active Substance: LISINOPRIL
     Indication: BLOOD PRESSURE ABNORMAL
     Route: 048
  6. UROXATRAL [Concomitant]
     Active Substance: ALFUZOSIN HYDROCHLORIDE
     Indication: PROSTATIC DISORDER
     Route: 048

REACTIONS (5)
  - Haemorrhage urinary tract [Unknown]
  - Treatment noncompliance [Unknown]
  - Cystitis noninfective [Unknown]
  - Wrong technique in product usage process [Unknown]
  - Gingival bleeding [Unknown]

NARRATIVE: CASE EVENT DATE: 2019
